FAERS Safety Report 12362920 (Version 2)
Quarter: 2020Q1

REPORT INFORMATION
  Report Type: Spontaneous
  Country: US (occurrence: US)
  Receive Date: 20160512
  Receipt Date: 20200110
  Transmission Date: 20200409
  Serious: No
  Sender: FDA-Public Use
  Company Number: US-UCBSA-2015005682

PATIENT
  Age: 45 Year
  Sex: Female
  Weight: 280 kg

DRUGS (1)
  1. CIMZIA [Suspect]
     Active Substance: CERTOLIZUMAB PEGOL
     Indication: RHEUMATOID ARTHRITIS
     Dosage: 400 MG, EV 2 WEEKS(QOW), WEEKS 0,2,4
     Route: 058
     Dates: start: 20130826, end: 201309

REACTIONS (6)
  - Contusion [Recovered/Resolved]
  - Eye haemorrhage [Unknown]
  - Aphonia [Unknown]
  - Ocular discomfort [Recovered/Resolved]
  - Nasopharyngitis [Unknown]
  - Ocular vasculitis [Unknown]

NARRATIVE: CASE EVENT DATE: 2013
